FAERS Safety Report 9684526 (Version 1)
Quarter: 2013Q4

REPORT INFORMATION
  Report Type: Spontaneous
  Country: CA (occurrence: None)
  Receive Date: 20131108
  Receipt Date: 20131108
  Transmission Date: 20140711
  Serious: Yes (Hospitalization)
  Sender: FDA-Public Use
  Company Number: 7246502

PATIENT
  Age: 57 Year
  Sex: Male

DRUGS (8)
  1. LEVOTHYROXINE [Suspect]
     Indication: PRODUCT USED FOR UNKNOWN INDICATION
  2. ATENOLOL [Suspect]
     Indication: PRODUCT USED FOR UNKNOWN INDICATION
     Dosage: 50 TABLETS OF ATENOLOL (50 DF)
  3. AMLODIPINE [Concomitant]
  4. LITHIUM [Concomitant]
  5. METHYLPHENIDATE [Concomitant]
  6. LAMOTRIGINE [Concomitant]
  7. CLONAZEPAM [Concomitant]
  8. MIRTAZAPINE [Concomitant]

REACTIONS (8)
  - Suicide attempt [None]
  - Intentional overdose [None]
  - Depressed level of consciousness [None]
  - Electrocardiogram abnormal [None]
  - Confusional state [None]
  - Sinus bradycardia [None]
  - Hypotension [None]
  - Somnolence [None]
